FAERS Safety Report 15720476 (Version 2)
Quarter: 2018Q4

REPORT INFORMATION
  Report Type: Spontaneous
  Country: US (occurrence: US)
  Receive Date: 20181213
  Receipt Date: 20181221
  Transmission Date: 20190205
  Serious: Yes (Other)
  Sender: FDA-Public Use
  Company Number: US-BIOMARINAP-US-2018-121139

PATIENT
  Age: 31 Year
  Sex: Male
  Weight: 35 kg

DRUGS (1)
  1. VIMIZIM [Suspect]
     Active Substance: ELOSULFASE ALFA
     Indication: MUCOPOLYSACCHARIDOSIS IV
     Dosage: 80 MILLIGRAM, QW
     Route: 042
     Dates: start: 20140814

REACTIONS (1)
  - Orthopaedic procedure [Unknown]

NARRATIVE: CASE EVENT DATE: 20181203
